FAERS Safety Report 11315313 (Version 1)
Quarter: 2015Q3

REPORT INFORMATION
  Report Type: Other
  Country: SE (occurrence: SE)
  Receive Date: 20150727
  Receipt Date: 20150727
  Transmission Date: 20151125
  Serious: Yes (Hospitalization, Other)
  Sender: FDA-Public Use
  Company Number: SE-ENDO PHARMACEUTICALS INC-2015-001960

PATIENT
  Age: 41 Year
  Sex: Female

DRUGS (1)
  1. METHYLPHENIDATE HYDROCHLORIDE TABLETS [Suspect]
     Active Substance: METHYLPHENIDATE HYDROCHLORIDE
     Indication: DRUG ABUSE
     Route: 042

REACTIONS (6)
  - Incorrect route of drug administration [Unknown]
  - Renal failure [Unknown]
  - Disseminated intravascular coagulation [Unknown]
  - Haemolytic anaemia [Unknown]
  - Intentional product misuse [Unknown]
  - Wrong technique in product usage process [Unknown]
